FAERS Safety Report 8173398-9 (Version None)
Quarter: 2012Q1

REPORT INFORMATION
  Report Type: 
  Country: None (occurrence: None)
  Receive Date: 20120229
  Receipt Date: 20120216
  Transmission Date: 20120608
  Serious: Yes (Hospitalization)
  Sender: FDA-Public Use
  Company Number: DE-CELGENEUS-062-21880-11081000

PATIENT
  Age: 71 Year
  Sex: Male
  Weight: 50.8 kg

DRUGS (7)
  1. REVLIMID [Suspect]
     Indication: PLASMACYTOMA
     Route: 048
     Dates: start: 20100810
  2. DEXAMETHASONE [Suspect]
     Route: 065
     Dates: start: 20110810
  3. IBANDRONATE SODIUM [Concomitant]
     Indication: PLASMACYTOMA
     Dosage: 6 MILLIGRAM
     Route: 065
     Dates: start: 20070615
  4. REVLIMID [Suspect]
     Dosage: 15MG - 5 MG
     Route: 048
     Dates: start: 20110810
  5. DEXAMETHASONE [Suspect]
     Indication: PLASMACYTOMA
     Route: 065
     Dates: start: 20100810
  6. TAVGIN [Concomitant]
     Indication: PAIN
     Dosage: 10 MILLIGRAM
     Route: 065
     Dates: start: 20100828
  7. VITAMIN B-12 [Concomitant]
     Indication: VITAMIN B12 DEFICIENCY
     Dosage: 1 VIAL
     Route: 065
     Dates: start: 20100614

REACTIONS (1)
  - HEPATIC NEOPLASM MALIGNANT [None]
